FAERS Safety Report 20196841 (Version 4)
Quarter: 2022Q1

REPORT INFORMATION
  Report Type: Report from Study
  Country: US (occurrence: US)
  Receive Date: 20211217
  Receipt Date: 20220301
  Transmission Date: 20220423
  Serious: Yes (Death, Hospitalization, Other)
  Sender: FDA-Public Use
  Company Number: US-ACADIA PHARMACEUTICALS INC.-ACA-2021-PIM-004127

PATIENT
  Age: 78 Year
  Sex: Female

DRUGS (6)
  1. NUPLAZID [Suspect]
     Active Substance: PIMAVANSERIN TARTRATE
     Indication: Parkinson^s disease
     Dosage: 34 MILLIGRAM, QD
     Route: 048
     Dates: start: 20210505
  2. NUPLAZID [Suspect]
     Active Substance: PIMAVANSERIN TARTRATE
     Dosage: 34 MILLIGRAM, QD
     Route: 048
     Dates: start: 202106, end: 20220113
  3. MORPHINE [Concomitant]
     Active Substance: MORPHINE
  4. EXELON [Concomitant]
     Active Substance: RIVASTIGMINE TARTRATE
  5. QUETIAPINE [Concomitant]
     Active Substance: QUETIAPINE
  6. LEXAPRO [Concomitant]
     Active Substance: ESCITALOPRAM OXALATE

REACTIONS (8)
  - Cardio-respiratory arrest [Recovered/Resolved]
  - Hip fracture [Recovered/Resolved]
  - Fall [Recovered/Resolved]
  - Mental status changes [Unknown]
  - Urinary tract infection [Unknown]
  - Asthenia [Unknown]
  - Fatigue [Unknown]
  - Hallucination [Unknown]

NARRATIVE: CASE EVENT DATE: 20211120
